FAERS Safety Report 5672919-5 (Version None)
Quarter: 2008Q1

REPORT INFORMATION
  Report Type: 
  Country: None (occurrence: None)
  Receive Date: 20080319
  Receipt Date: 20071210
  Transmission Date: 20080703
  Serious: No
  Sender: FDA-Public Use
  Company Number: US-ASTRAZENECA-2007UW28165

PATIENT
  Age: 60 Year
  Sex: Female

DRUGS (4)
  1. SYMBICORT [Suspect]
     Indication: ASTHMA
     Dosage: 160 UG/4.5 UG AS NEEDED
     Route: 055
  2. LEVOTHYROXINE SODIUM [Concomitant]
  3. BENCAL [Concomitant]
  4. COMBIVENT [Concomitant]

REACTIONS (1)
  - DERMATITIS [None]
